FAERS Safety Report 7254107-4 (Version None)
Quarter: 2011Q1

REPORT INFORMATION
  Report Type: 
  Country: None (occurrence: None)
  Receive Date: 20110129
  Receipt Date: 20100422
  Transmission Date: 20110831
  Serious: No
  Sender: FDA-Public Use
  Company Number: US-ABBOTT-10P-163-0640354-00

PATIENT
  Sex: Female
  Weight: 74.91 kg

DRUGS (3)
  1. HUMIRA [Suspect]
     Indication: CROHN'S DISEASE
  2. HUMIRA [Suspect]
     Dosage: HUMIRA PRE-FILLED SYRINGE
     Dates: start: 20081101
  3. HUMIRA [Suspect]
     Dosage: HUMIRA PRE-FILLED SYRINGE
     Dates: start: 20071101

REACTIONS (7)
  - HYPERHIDROSIS [None]
  - LETHARGY [None]
  - CROHN'S DISEASE [None]
  - NAUSEA [None]
  - DIARRHOEA [None]
  - VAGINAL ODOUR [None]
  - VAGINAL DISCHARGE [None]
